FAERS Safety Report 12975587 (Version 3)
Quarter: 2016Q4

REPORT INFORMATION
  Report Type: Report from Study
  Country: None (occurrence: IL)
  Receive Date: 20161125
  Receipt Date: 20161221
  Transmission Date: 20170207
  Serious: Yes (Other)
  Sender: FDA-Public Use
  Company Number: IL-ABBVIE-16K-082-1790710-00

PATIENT
  Age: 64 Year
  Sex: Female

DRUGS (1)
  1. DUODOPA [Suspect]
     Active Substance: CARBIDOPA\LEVODOPA
     Indication: PARKINSON^S DISEASE
     Dosage: MORNING DOSE -5.5 ML/HOUR
     Route: 050
     Dates: start: 20161120

REACTIONS (8)
  - Abdominal distension [Not Recovered/Not Resolved]
  - Insomnia [Not Recovered/Not Resolved]
  - Vomiting [Recovered/Resolved]
  - Constipation [Recovering/Resolving]
  - Drug effect variable [Not Recovered/Not Resolved]
  - Urine output decreased [Recovered/Resolved]
  - Asthenia [Recovering/Resolving]
  - Infrequent bowel movements [Recovering/Resolving]

NARRATIVE: CASE EVENT DATE: 201611
